FAERS Safety Report 16026719 (Version 2)
Quarter: 2019Q1

REPORT INFORMATION
  Report Type: Report from Study
  Country: IT (occurrence: IT)
  Receive Date: 20190303
  Receipt Date: 20190314
  Transmission Date: 20190418
  Serious: Yes (Hospitalization)
  Sender: FDA-Public Use
  Company Number: IT-ACCORD-110582

PATIENT
  Age: 16 Year
  Sex: Female

DRUGS (4)
  1. BRUFEN [Suspect]
     Active Substance: IBUPROFEN
     Dosage: 600 MG, COATED TABLETS
     Route: 048
     Dates: start: 20180802, end: 20180802
  2. SERTRALINE [Suspect]
     Active Substance: SERTRALINE HYDROCHLORIDE
     Indication: MENTAL DISORDER
     Route: 048
     Dates: start: 20180802, end: 20180802
  3. FLUOXETINE [Concomitant]
     Active Substance: FLUOXETINE HYDROCHLORIDE
     Indication: ANOREXIA NERVOSA
     Route: 048
  4. OLANZAPINE. [Concomitant]
     Active Substance: OLANZAPINE
     Indication: MENTAL DISORDER
     Route: 048

REACTIONS (3)
  - Vomiting [Recovered/Resolved]
  - Intentional self-injury [Unknown]
  - Drug abuse [Unknown]

NARRATIVE: CASE EVENT DATE: 20180802
